FAERS Safety Report 7327499-5 (Version None)
Quarter: 2011Q1

REPORT INFORMATION
  Report Type: 
  Country: None (occurrence: None)
  Receive Date: 20110303
  Receipt Date: 20110222
  Transmission Date: 20110831
  Serious: Yes (Hospitalization)
  Sender: FDA-Public Use
  Company Number: US-BIOGENIDEC-2011BI002793

PATIENT
  Age: 55 Year
  Sex: Male
  Weight: 116 kg

DRUGS (2)
  1. TYSABRI [Suspect]
     Indication: MULTIPLE SCLEROSIS
     Route: 042
     Dates: start: 20101227, end: 20110221
  2. METHADONE HYDROCHLORIDE [Concomitant]
     Indication: PAIN

REACTIONS (6)
  - ARTHRALGIA [None]
  - INFLUENZA LIKE ILLNESS [None]
  - BACK PAIN [None]
  - HEADACHE [None]
  - HYPERSENSITIVITY [None]
  - BONE PAIN [None]
